FAERS Safety Report 4507207-3 (Version None)
Quarter: 2004Q4

REPORT INFORMATION
  Report Type: 
  Country: None (occurrence: None)
  Receive Date: 20041122
  Receipt Date: 20020624
  Transmission Date: 20050328
  Serious: Yes (Death, Hospitalization, Other)
  Sender: FDA-Public Use
  Company Number: US-MERCK-0206USA02433

PATIENT
  Age: 82 Year
  Sex: Male
  Weight: 68 kg

DRUGS (3)
  1. VIOXX [Suspect]
     Indication: MUSCULOSKELETAL DISCOMFORT
     Route: 048
     Dates: start: 20010509, end: 20010701
  2. VIOXX [Suspect]
     Indication: BURSITIS
     Route: 048
     Dates: start: 20010509, end: 20010701
  3. VITAMINS (UNSPECIFIED) [Concomitant]
     Route: 065

REACTIONS (11)
  - ANGINA PECTORIS [None]
  - CEREBROVASCULAR ACCIDENT [None]
  - DEATH [None]
  - DECREASED APPETITE [None]
  - ECZEMA [None]
  - GASTROINTESTINAL DISORDER [None]
  - HYPERTENSION [None]
  - KYPHOSIS [None]
  - NON-SMALL CELL LUNG CANCER METASTATIC [None]
  - RHINITIS ALLERGIC [None]
  - SCIATICA [None]
